FAERS Safety Report 6919526-1 (Version None)
Quarter: 2010Q3

REPORT INFORMATION
  Report Type: 
  Country: None (occurrence: None)
  Receive Date: 20100810
  Receipt Date: 20100810
  Transmission Date: 20110219
  Serious: Yes (Other)
  Sender: FDA-Public Use
  Company Number: None

PATIENT
  Age: 39 Year
  Sex: Female
  Weight: 78.0187 kg

DRUGS (6)
  1. ENBREL [Suspect]
     Indication: RHEUMATOID ARTHRITIS
     Dosage: 50MG ONCE A WEEK UNK
     Dates: start: 20070220, end: 20100731
  2. ARAVA [Concomitant]
  3. METHOTREXATE [Concomitant]
  4. REMICADE [Concomitant]
  5. HUMIRA [Concomitant]
  6. PREDNISONE [Concomitant]

REACTIONS (4)
  - CERVICAL CYST [None]
  - CYST [None]
  - HAEMORRHAGIC CYST [None]
  - MELANOCYTIC NAEVUS [None]
